FAERS Safety Report 15826932 (Version 1)
Quarter: 2019Q1

REPORT INFORMATION
  Report Type: Spontaneous
  Country: JP (occurrence: JP)
  Receive Date: 20190115
  Receipt Date: 20190115
  Transmission Date: 20190417
  Serious: Yes (Death, Hospitalization, Other)
  Sender: FDA-Public Use
  Company Number: JP-UNICHEM PHARMACEUTICALS (USA) INC-UCM201901-000006

PATIENT
  Age: 55 Year
  Sex: Female

DRUGS (7)
  1. DIART [Suspect]
     Active Substance: AZOSEMIDE
     Dosage: 16 TABLETS
  2. INHIROKKU [Suspect]
     Active Substance: CILAZAPRIL ANHYDROUS
     Dosage: 27 TABLETS
  3. LIPITOR [Suspect]
     Active Substance: ATORVASTATIN CALCIUM
     Dosage: 10 TABLETS
  4. LASIX [Suspect]
     Active Substance: FUROSEMIDE
     Dosage: 10 TABLETS
  5. BRATOGEN [Suspect]
     Active Substance: GLYBURIDE
  6. GLIBENCLAMIDE [Suspect]
     Active Substance: GLYBURIDE
     Dosage: 21 TABLETS
  7. AMLODIPINE [Suspect]
     Active Substance: AMLODIPINE BESYLATE
     Dosage: 17 TABLETS

REACTIONS (4)
  - Intentional overdose [Fatal]
  - Hypotension [Not Recovered/Not Resolved]
  - Cardio-respiratory arrest [Fatal]
  - Atrial pressure increased [Not Recovered/Not Resolved]
